FAERS Safety Report 12647358 (Version 3)
Quarter: 2016Q4

REPORT INFORMATION
  Report Type: Spontaneous
  Country: US (occurrence: US)
  Receive Date: 20160812
  Receipt Date: 20161010
  Transmission Date: 20170207
  Serious: Yes (Death, Other)
  Sender: FDA-Public Use
  Company Number: US-ASTELLAS-2016US030629

PATIENT
  Age: 76 Year
  Sex: Male

DRUGS (1)
  1. CRESEMBA [Suspect]
     Active Substance: ISAVUCONAZONIUM SULFATE
     Indication: ASPERGILLUS INFECTION
     Dosage: 372 MG, DAILY
     Route: 048
     Dates: start: 20160701, end: 201607

REACTIONS (6)
  - Vomiting [Not Recovered/Not Resolved]
  - Acute respiratory failure [Unknown]
  - Crohn^s disease [Fatal]
  - Acute myeloid leukaemia [Fatal]
  - Abdominal pain upper [Not Recovered/Not Resolved]
  - Small intestinal obstruction [Fatal]

NARRATIVE: CASE EVENT DATE: 201607
